FAERS Safety Report 22343276 (Version 1)
Quarter: 2023Q2

REPORT INFORMATION
  Report Type: Spontaneous
  Country: US (occurrence: US)
  Receive Date: 20230519
  Receipt Date: 20230519
  Transmission Date: 20230721
  Serious: No
  Sender: FDA-Public Use
  Company Number: US-SANOFI-01617270

PATIENT
  Age: 89 Year
  Sex: Female

DRUGS (2)
  1. LANTUS SOLOSTAR [Suspect]
     Active Substance: INSULIN GLARGINE
     Indication: Type 2 diabetes mellitus
     Dosage: 20 U, HS
  2. LANTUS SOLOSTAR [Suspect]
     Active Substance: INSULIN GLARGINE
     Dosage: 10 UNITS OF LANTUS SOLOSTAR IN THE MORNING AND 10 UNITS AT NIGHT.

REACTIONS (4)
  - Hypoacusis [Not Recovered/Not Resolved]
  - Visual impairment [Not Recovered/Not Resolved]
  - Inappropriate schedule of product administration [Unknown]
  - Product dispensing error [Unknown]
